FAERS Safety Report 18728873 (Version 2)
Quarter: 2021Q1

REPORT INFORMATION
  Report Type: Report from Study
  Country: None (occurrence: SE)
  Receive Date: 20210112
  Receipt Date: 20210115
  Transmission Date: 20210419
  Serious: Yes (Hospitalization, Other)
  Sender: FDA-Public Use
  Company Number: SE-ABBVIE-21K-150-3722813-00

PATIENT
  Age: 70 Year
  Sex: Male

DRUGS (2)
  1. DUODOPA [Suspect]
     Active Substance: CARBIDOPA\LEVODOPA
     Dosage: MORNING DOSE DECREASED FROM 15ML TO 13ML. EXTRA DOSE INCREASED FROM 1.5ML TO 2.0ML.
     Route: 050
     Dates: start: 20210108
  2. DUODOPA [Suspect]
     Active Substance: CARBIDOPA\LEVODOPA
     Indication: PARKINSON^S DISEASE
     Route: 050
     Dates: start: 20170206

REACTIONS (6)
  - Anaemia [Not Recovered/Not Resolved]
  - Intestinal haemorrhage [Unknown]
  - Fatigue [Unknown]
  - Fall [Unknown]
  - Dizziness [Unknown]
  - Hyperkinesia [Not Recovered/Not Resolved]
